FAERS Safety Report 8839675 (Version 1)
Quarter: 2012Q4

REPORT INFORMATION
  Report Type: 
  Country: US (occurrence: US)
  Receive Date: 20121015
  Receipt Date: 20121015
  Transmission Date: 20130627
  Serious: Yes (Hospitalization, Other)
  Sender: FDA-Public Use
  Company Number: PHEH2012US020122

PATIENT
  Sex: Female

DRUGS (6)
  1. GILENYA [Suspect]
     Indication: MULTIPLE SCLEROSIS
     Dosage: 0.5 mg, QD
     Route: 048
     Dates: start: 201206
  2. EFFEXOR [Concomitant]
  3. TAMPZAPINE [Concomitant]
  4. MIRTAZAPINE [Concomitant]
  5. ABILIFY [Concomitant]
  6. BACLOFEN [Concomitant]

REACTIONS (5)
  - Gastric infection [Unknown]
  - Faecal incontinence [Not Recovered/Not Resolved]
  - Memory impairment [Unknown]
  - Visual acuity reduced [Unknown]
  - Vision blurred [Unknown]
